FAERS Safety Report 22863904 (Version 2)
Quarter: 2024Q2

REPORT INFORMATION
  Report Type: Spontaneous
  Country: CN (occurrence: CN)
  Receive Date: 20230825
  Receipt Date: 20240615
  Transmission Date: 20240715
  Serious: Yes (Hospitalization)
  Sender: FDA-Public Use
  Company Number: CN-ABBVIE-5373418

PATIENT
  Age: 15 Year
  Sex: Male

DRUGS (10)
  1. VENETOCLAX [Suspect]
     Active Substance: VENETOCLAX
     Indication: T-cell type acute leukaemia
     Route: 048
     Dates: start: 20220122
  2. VENETOCLAX [Suspect]
     Active Substance: VENETOCLAX
     Indication: T-cell type acute leukaemia
     Dosage: AFTER RESTARTING CHEMOTHERAPY?DAY 2 TO DAY 16
     Route: 048
  3. VENETOCLAX [Suspect]
     Active Substance: VENETOCLAX
     Indication: T-cell type acute leukaemia
     Route: 048
  4. CYCLOSPORINE [Suspect]
     Active Substance: CYCLOSPORINE
     Indication: Prophylaxis against graft versus host disease
     Route: 048
  5. AZACITIDINE [Concomitant]
     Active Substance: AZACITIDINE
     Indication: T-cell type acute leukaemia
     Route: 048
     Dates: start: 20220122
  6. AZACITIDINE [Concomitant]
     Active Substance: AZACITIDINE
     Indication: T-cell type acute leukaemia
     Dosage: AFTER RESTARTING CHEMOTHERAPY?DAY 1 TO DAY 8
     Route: 048
  7. CYCLOPHOSPHAMIDE [Concomitant]
     Active Substance: CYCLOPHOSPHAMIDE
     Indication: T-cell type acute leukaemia
     Dosage: DAY 1
     Route: 048
     Dates: start: 20220122
  8. CYTARABINE [Concomitant]
     Active Substance: CYTARABINE
     Indication: T-cell type acute leukaemia
     Route: 048
     Dates: start: 20220122
  9. LAROTRECTINIB [Suspect]
     Active Substance: LAROTRECTINIB
     Indication: T-cell type acute leukaemia
     Dosage: DOSE REDUCED
     Route: 048
     Dates: start: 20220122
  10. VORICONAZOLE [Concomitant]
     Active Substance: VORICONAZOLE
     Indication: T-cell type acute leukaemia
     Route: 048

REACTIONS (2)
  - Hepatotoxicity [Unknown]
  - Vomiting [Unknown]
